FAERS Safety Report 20861990 (Version 1)
Quarter: 2022Q2

REPORT INFORMATION
  Report Type: Report from Study
  Country: US (occurrence: US)
  Receive Date: 20220523
  Receipt Date: 20220523
  Transmission Date: 20220721
  Serious: Yes (Other)
  Sender: FDA-Public Use
  Company Number: US-BRISTOL-MYERS SQUIBB COMPANY-2022-038333

PATIENT
  Age: 66 Year
  Sex: Female
  Weight: 54.4 kg

DRUGS (3)
  1. POMALYST [Suspect]
     Active Substance: POMALIDOMIDE
     Indication: Plasma cell myeloma
  2. POMALYST [Suspect]
     Active Substance: POMALIDOMIDE
     Indication: Metastases to bone
  3. POMALYST [Suspect]
     Active Substance: POMALIDOMIDE
     Indication: Abscess intestinal

REACTIONS (1)
  - Large intestine perforation [Unknown]
